FAERS Safety Report 10402989 (Version 1)
Quarter: 2014Q3

REPORT INFORMATION
  Report Type: Spontaneous
  Country: GR (occurrence: GR)
  Receive Date: 20140822
  Receipt Date: 20140822
  Transmission Date: 20150326
  Serious: Yes (Hospitalization, Other)
  Sender: FDA-Public Use
  Company Number: PHHY2014GR103452

PATIENT
  Age: 27 Year
  Sex: Female

DRUGS (3)
  1. ENOXAPARIN [Suspect]
     Active Substance: ENOXAPARIN
     Indication: ANTICOAGULANT THERAPY
     Dosage: 1 MG/KG, QD
  2. METHYLPREDNISOLONE [Suspect]
     Active Substance: METHYLPREDNISOLONE
     Indication: SYSTEMIC LUPUS ERYTHEMATOSUS
     Dosage: 4 MG, UNK
  3. CORTICOSTEROIDS [Suspect]
     Active Substance: CORTICOSTEROID NOS

REACTIONS (17)
  - Gastric haemorrhage [Recovered/Resolved]
  - Hepatomegaly [Unknown]
  - Irritability [Unknown]
  - Delusion [Recovered/Resolved]
  - Systemic lupus erythematosus [Unknown]
  - Sleep disorder [Unknown]
  - Self-injurious ideation [Unknown]
  - Maternal exposure during pregnancy [Unknown]
  - Thrombocytopenia [Unknown]
  - Budd-Chiari syndrome [Unknown]
  - Depression [Unknown]
  - Portal vein thrombosis [Recovered/Resolved]
  - Depressed mood [Unknown]
  - Psychotic disorder [Recovered/Resolved]
  - Gastrointestinal haemorrhage [Recovered/Resolved]
  - Hallucination [Recovered/Resolved]
  - Abdominal pain upper [Unknown]
